FAERS Safety Report 5348079-7 (Version None)
Quarter: 2007Q2

REPORT INFORMATION
  Report Type: 
  Country: None (occurrence: None)
  Receive Date: 20070508
  Receipt Date: 20070109
  Transmission Date: 20071010
  Serious: Yes (Hospitalization)
  Sender: FDA-Public Use
  Company Number: 230187K07USA

PATIENT
  Age: 53 Year
  Sex: Male

DRUGS (3)
  1. REBIF [Suspect]
     Indication: MULTIPLE SCLEROSIS
     Dosage: 44 MCG, 3 IN 1 WEEKS, SUBCUTANEOUS
     Route: 058
     Dates: start: 20060606
  2. OXYBUTYNIN (OXYBUTAYNIN /00538901/) [Concomitant]
  3. VESICARE [Concomitant]

REACTIONS (9)
  - BALANCE DISORDER [None]
  - CONSTIPATION [None]
  - INJECTION SITE HAEMORRHAGE [None]
  - INJECTION SITE NODULE [None]
  - INJECTION SITE REACTION [None]
  - MULTIPLE SCLEROSIS RELAPSE [None]
  - MUSCLE SPASTICITY [None]
  - STOMACH DISCOMFORT [None]
  - VISUAL DISTURBANCE [None]
